FAERS Safety Report 7990313-9 (Version None)
Quarter: 2011Q4

REPORT INFORMATION
  Report Type: 
  Country: None (occurrence: None)
  Receive Date: 20111219
  Receipt Date: 20110620
  Transmission Date: 20120403
  Serious: No
  Sender: FDA-Public Use
  Company Number: US-ASTRAZENECA-2011SE37493

PATIENT
  Age: 86 Year
  Sex: Female

DRUGS (2)
  1. TOPROL-XL [Suspect]
     Route: 048
  2. CRESTOR [Suspect]
     Route: 048

REACTIONS (5)
  - VERTIGO [None]
  - FALL [None]
  - LUNG DISORDER [None]
  - RHEUMATOID ARTHRITIS [None]
  - DIABETES MELLITUS [None]
